FAERS Safety Report 13148038 (Version 1)
Quarter: 2017Q1

REPORT INFORMATION
  Report Type: Spontaneous
  Country: PL (occurrence: PL)
  Receive Date: 20170125
  Receipt Date: 20170125
  Transmission Date: 20170428
  Serious: Yes (Other)
  Sender: FDA-Public Use
  Company Number: PHHY2017PL007271

PATIENT
  Age: 83 Year

DRUGS (1)
  1. GLIVEC [Suspect]
     Active Substance: IMATINIB MESYLATE
     Indication: CHRONIC MYELOID LEUKAEMIA
     Dosage: 400 MG, UNK
     Route: 065
     Dates: start: 201004, end: 201007

REACTIONS (10)
  - Hypertension [Unknown]
  - Psoriasis [Unknown]
  - Drug intolerance [Unknown]
  - Periorbital oedema [Unknown]
  - Face oedema [Unknown]
  - Circulatory collapse [Unknown]
  - Diabetes mellitus [Unknown]
  - Pleural effusion [Unknown]
  - Oedema peripheral [Unknown]
  - Rash [Unknown]

NARRATIVE: CASE EVENT DATE: 2010
